FAERS Safety Report 11430308 (Version 1)
Quarter: 2015Q3

REPORT INFORMATION
  Report Type: Spontaneous
  Country: US (occurrence: US)
  Receive Date: 20150828
  Receipt Date: 20150828
  Transmission Date: 20151125
  Serious: No
  Sender: FDA-Public Use
  Company Number: US-ROCHE-1195240

PATIENT
  Sex: Male

DRUGS (1)
  1. PEGASYS [Suspect]
     Active Substance: PEGINTERFERON ALFA-2A
     Indication: HEPATITIS C
     Route: 058

REACTIONS (6)
  - Underdose [Unknown]
  - Malaise [Unknown]
  - Overdose [Unknown]
  - Influenza like illness [Unknown]
  - Accidental exposure to product [Unknown]
  - Abdominal pain upper [Unknown]
